FAERS Safety Report 14770465 (Version 2)
Quarter: 2018Q2

REPORT INFORMATION
  Report Type: Spontaneous
  Country: CZ (occurrence: CZ)
  Receive Date: 20180417
  Receipt Date: 20180514
  Transmission Date: 20180711
  Serious: Yes (Hospitalization, Other)
  Sender: FDA-Public Use
  Company Number: CZ-MIST-TIR-2018-0366

PATIENT
  Age: 41 Year
  Sex: Female

DRUGS (3)
  1. DROSPIRENONE AND ETHINYL ESTRADIOL [Suspect]
     Active Substance: DROSPIRENONE\ETHINYL ESTRADIOL
     Indication: ORAL CONTRACEPTION
     Dosage: UNKNOWN (3MG/20MCG)
     Route: 048
  2. AMOXICILLIN CLAVULANIC ACID [Suspect]
     Active Substance: AMOXICILLIN\CLAVULANIC ACID
     Indication: SKIN ULCER
     Dosage: 3G, ONCE DAILY
     Route: 048
  3. LEVOTHYROXINE. [Suspect]
     Active Substance: LEVOTHYROXINE
     Indication: HYPOTHYROIDISM
     Dosage: UNKNOWN
     Route: 048

REACTIONS (5)
  - Drug ineffective [Unknown]
  - Skin necrosis [Recovered/Resolved]
  - Pyoderma gangrenosum [Recovered/Resolved]
  - Cellulitis [Unknown]
  - Disease progression [Unknown]

NARRATIVE: CASE EVENT DATE: 201707
